FAERS Safety Report 25538405 (Version 1)
Quarter: 2025Q3

REPORT INFORMATION
  Report Type: Spontaneous
  Country: US (occurrence: None)
  Receive Date: 20250709
  Receipt Date: 20250709
  Transmission Date: 20251021
  Serious: Yes (Disabling)
  Sender: FDA-CTU
  Company Number: None

PATIENT
  Age: 52 Year
  Sex: Female
  Weight: 74.25 kg

DRUGS (5)
  1. CLONAZEPAM [Suspect]
     Active Substance: CLONAZEPAM
     Indication: Anxiety
  2. CELEXA [Suspect]
     Active Substance: CITALOPRAM HYDROBROMIDE
  3. LEXAPRO [Suspect]
     Active Substance: ESCITALOPRAM OXALATE
  4. WELLBUTRIN [Suspect]
     Active Substance: BUPROPION HYDROCHLORIDE
  5. ACYCLOVIR [Concomitant]
     Active Substance: ACYCLOVIR

REACTIONS (13)
  - Cognitive disorder [None]
  - Memory impairment [None]
  - Agitation [None]
  - Obsessive-compulsive personality disorder [None]
  - Hypersomnia [None]
  - Influenza like illness [None]
  - Sexual dysfunction [None]
  - Withdrawal syndrome [None]
  - Migraine [None]
  - Emotional distress [None]
  - Neuralgia [None]
  - Alopecia [None]
  - Speech disorder [None]

NARRATIVE: CASE EVENT DATE: 20170719
